FAERS Safety Report 23651671 (Version 2)
Quarter: 2024Q2

REPORT INFORMATION
  Report Type: Spontaneous
  Country: US (occurrence: US)
  Receive Date: 20240320
  Receipt Date: 20240408
  Transmission Date: 20240716
  Serious: No
  Sender: FDA-Public Use
  Company Number: US-002147023-NVSC2024US058801

PATIENT

DRUGS (3)
  1. KESIMPTA [Suspect]
     Active Substance: OFATUMUMAB
     Indication: Product used for unknown indication
     Dosage: UNK
     Route: 065
  2. PANAMAX [Concomitant]
     Indication: Product used for unknown indication
     Dosage: UNK
     Route: 065
  3. TYSABRI [Concomitant]
     Active Substance: NATALIZUMAB
     Indication: Product used for unknown indication
     Dosage: UNK
     Route: 065

REACTIONS (7)
  - JC polyomavirus test positive [Unknown]
  - Dry skin [Unknown]
  - Pain [Unknown]
  - Chills [Unknown]
  - Nausea [Unknown]
  - Pyrexia [Unknown]
  - Fatigue [Unknown]
